FAERS Safety Report 10036557 (Version 5)
Quarter: 2014Q2

REPORT INFORMATION
  Report Type: Spontaneous
  Country: GB (occurrence: GB)
  Receive Date: 20140326
  Receipt Date: 20140519
  Transmission Date: 20141212
  Serious: No
  Sender: FDA-Public Use
  Company Number: GB-BIOGENIDEC-2014BI017440

PATIENT
  Age: 30 Year
  Sex: Female

DRUGS (5)
  1. TYSABRI [Suspect]
     Indication: RELAPSING-REMITTING MULTIPLE SCLEROSIS
     Dates: start: 201001
  2. TYSABRI [Suspect]
     Indication: RELAPSING-REMITTING MULTIPLE SCLEROSIS
     Dates: start: 20140212
  3. AMITRIPTYLINE [Concomitant]
  4. SERTALINE [Concomitant]
  5. TRIMETHOPRIM [Concomitant]

REACTIONS (1)
  - Abdominal pain [Recovered/Resolved]
